FAERS Safety Report 9310888 (Version 2)
Quarter: 2013Q3

REPORT INFORMATION
  Report Type: Report from Study
  Country: JP (occurrence: JP)
  Receive Date: 20130528
  Receipt Date: 20130722
  Transmission Date: 20140515
  Serious: Yes (Life-Threatening)
  Sender: FDA-Public Use
  Company Number: JP-ROCHE-1228628

PATIENT
  Age: 76 Year
  Sex: Male

DRUGS (3)
  1. METHOXY POLYETHYLENE GLYCOL-EPOETIN BETA [Suspect]
     Indication: NEPHROGENIC ANAEMIA
     Route: 058
     Dates: start: 20120208
  2. ONEALFA [Concomitant]
     Indication: GLOMERULONEPHRITIS CHRONIC
     Route: 048
  3. MICARDIS [Concomitant]
     Route: 048

REACTIONS (2)
  - Bladder cancer [Recovered/Resolved]
  - Hypertension [Unknown]
